FAERS Safety Report 12536916 (Version 3)
Quarter: 2016Q3

REPORT INFORMATION
  Report Type: Spontaneous
  Country: US (occurrence: US)
  Receive Date: 20160707
  Receipt Date: 20160812
  Transmission Date: 20161109
  Serious: Yes (Other)
  Sender: FDA-Public Use
  Company Number: US-BAYER-2016-128018

PATIENT
  Age: 38 Year
  Sex: Male
  Weight: 99.77 kg

DRUGS (2)
  1. MAGNEVIST [Suspect]
     Active Substance: GADOPENTETATE DIMEGLUMINE
     Indication: MASS
  2. MAGNEVIST [Suspect]
     Active Substance: GADOPENTETATE DIMEGLUMINE
     Indication: NUCLEAR MAGNETIC RESONANCE IMAGING BRAIN
     Dosage: 15 ML, ONCE
     Route: 042
     Dates: start: 20160627, end: 20160627

REACTIONS (17)
  - Nausea [Recovered/Resolved]
  - Depressed level of consciousness [Recovered/Resolved]
  - Dyspnoea [Recovered/Resolved]
  - Pulse abnormal [Recovered/Resolved]
  - Pulse absent [Recovered/Resolved]
  - Hypotension [Recovered/Resolved]
  - Disorientation [Recovered/Resolved]
  - Seizure [Recovered/Resolved]
  - Unresponsive to stimuli [Recovered/Resolved]
  - Eye movement disorder [Recovered/Resolved]
  - Vomiting [Recovered/Resolved]
  - Heart rate increased [Recovered/Resolved]
  - Confusional state [Recovered/Resolved]
  - Radial pulse abnormal [Recovered/Resolved]
  - Anaphylactic reaction [Recovered/Resolved]
  - Speech disorder [Recovered/Resolved]
  - Tachycardia [Recovered/Resolved]

NARRATIVE: CASE EVENT DATE: 20160627
